FAERS Safety Report 5943217-7 (Version None)
Quarter: 2008Q4

REPORT INFORMATION
  Report Type: 
  Country: None (occurrence: None)
  Receive Date: 20081106
  Receipt Date: 20081031
  Transmission Date: 20090506
  Serious: Yes (Hospitalization)
  Sender: FDA-Public Use
  Company Number: B0544817A

PATIENT
  Age: 33 Year
  Sex: Female

DRUGS (5)
  1. LAMICTAL [Suspect]
     Indication: BIPOLAR II DISORDER
     Dosage: 50MG PER DAY
     Route: 048
     Dates: start: 20080927
  2. LITHIUM CARBONATE [Suspect]
     Indication: BIPOLAR II DISORDER
     Route: 065
     Dates: end: 20080927
  3. PAROXETINE HCL [Concomitant]
     Indication: BIPOLAR II DISORDER
     Dosage: 40MG PER DAY
     Route: 048
  4. IMIPRAMINE [Concomitant]
     Indication: BIPOLAR II DISORDER
     Dosage: 25MG PER DAY
     Route: 065
  5. CLONAZEPAM [Concomitant]
     Indication: BIPOLAR II DISORDER
     Dosage: 1MG PER DAY
     Route: 065

REACTIONS (8)
  - DRUG ERUPTION [None]
  - GRANULOCYTE COUNT INCREASED [None]
  - HEPATIC LESION [None]
  - HYPOTHYROIDISM [None]
  - IMMUNE SYSTEM DISORDER [None]
  - NEUTROPHIL COUNT INCREASED [None]
  - PYREXIA [None]
  - WHITE BLOOD CELL COUNT DECREASED [None]
